FAERS Safety Report 14739645 (Version 1)
Quarter: 2018Q2

REPORT INFORMATION
  Report Type: Spontaneous
  Country: JP (occurrence: JP)
  Receive Date: 20180410
  Receipt Date: 20180410
  Transmission Date: 20180711
  Serious: Yes (Other)
  Sender: FDA-Public Use
  Company Number: JP-009507513-1601JPN000802

PATIENT
  Sex: Female

DRUGS (3)
  1. NU-LOTAN [Suspect]
     Active Substance: LOSARTAN POTASSIUM
     Indication: CARDIAC FAILURE CHRONIC
     Dosage: UNK
     Route: 048
  2. NU-LOTAN [Suspect]
     Active Substance: LOSARTAN POTASSIUM
     Dosage: 12.5 MG, PRN
     Route: 048
  3. NU-LOTAN [Suspect]
     Active Substance: LOSARTAN POTASSIUM
     Indication: CARDIAC FAILURE CHRONIC
     Dosage: 12.5 MG, PRN
     Route: 048
     Dates: end: 201604

REACTIONS (4)
  - Head discomfort [Unknown]
  - Arrhythmia [Unknown]
  - Presyncope [Unknown]
  - Off label use [Unknown]

NARRATIVE: CASE EVENT DATE: 2016
